FAERS Safety Report 21903909 (Version 3)
Quarter: 2024Q3

REPORT INFORMATION
  Report Type: Spontaneous
  Country: CA (occurrence: CA)
  Receive Date: 20230124
  Receipt Date: 20240829
  Transmission Date: 20241016
  Serious: Yes (Death, Hospitalization)
  Sender: ROCHE
  Company Number: CA-ROCHE-3267835

PATIENT
  Age: 44 Year
  Sex: Female
  Weight: 63.0 kg

DRUGS (22)
  1. ACTEMRA [Suspect]
     Active Substance: TOCILIZUMAB
     Indication: Rheumatoid arthritis
     Route: 058
  2. AMITRIPTYLINE [Suspect]
     Active Substance: AMITRIPTYLINE
     Indication: Product used for unknown indication
     Route: 048
  3. AMITRIPTYLINE [Suspect]
     Active Substance: AMITRIPTYLINE
     Route: 048
  4. NAPROXEN [Suspect]
     Active Substance: NAPROXEN
     Indication: Product used for unknown indication
     Route: 065
  5. NAPROXEN [Suspect]
     Active Substance: NAPROXEN
     Route: 048
  6. NAPROXEN [Suspect]
     Active Substance: NAPROXEN
     Route: 065
  7. NAPROXEN [Suspect]
     Active Substance: NAPROXEN
     Route: 065
  8. NAPROXEN [Suspect]
     Active Substance: NAPROXEN
     Route: 065
  9. NAPROXEN [Suspect]
     Active Substance: NAPROXEN
     Indication: Product used for unknown indication
     Dosage: ENTERIC COATED TABLET
     Route: 048
  10. NAPROXEN [Suspect]
     Active Substance: NAPROXEN
     Dosage: ENTERIC COATED TABLET
     Route: 048
  11. NAPROXEN [Suspect]
     Active Substance: NAPROXEN
     Dosage: ENTERIC COATED TABLET
     Route: 048
  12. NAPROXEN [Suspect]
     Active Substance: NAPROXEN
     Dosage: ENTERIC COATED TABLET
     Route: 048
  13. NAPROXEN [Suspect]
     Active Substance: NAPROXEN
     Dosage: ENTERIC COATED TABLET
     Route: 048
  14. NAPROXEN [Suspect]
     Active Substance: NAPROXEN
     Dosage: ENTERIC COATED TABLET
     Route: 048
  15. NAPROXEN [Suspect]
     Active Substance: NAPROXEN
     Dosage: ENTERIC COATED TABLET
     Route: 048
  16. NAPROXEN [Suspect]
     Active Substance: NAPROXEN
     Dosage: ENTERIC COATED TABLET
     Route: 048
  17. NAPROXEN [Suspect]
     Active Substance: NAPROXEN
     Dosage: ENTERIC COATED TABLET
     Route: 048
  18. NAPROXEN [Suspect]
     Active Substance: NAPROXEN
     Dosage: ENTERIC COATED TABLET
     Route: 048
  19. NAPROXEN [Suspect]
     Active Substance: NAPROXEN
     Dosage: ENTERIC COATED TABLET
     Route: 048
  20. NAPROXEN [Suspect]
     Active Substance: NAPROXEN
     Dosage: ENTERIC COATED TABLET
     Route: 048
  21. RITUXIMAB [Suspect]
     Active Substance: RITUXIMAB
     Indication: Product used for unknown indication
     Route: 065
  22. BACTRIM [Suspect]
     Active Substance: SULFAMETHOXAZOLE\TRIMETHOPRIM
     Indication: Product used for unknown indication
     Route: 065

REACTIONS (111)
  - Abdominal pain [Unknown]
  - Allergy to chemicals [Unknown]
  - Antinuclear antibody positive [Unknown]
  - Arthralgia [Unknown]
  - Arthritis [Unknown]
  - Atelectasis [Unknown]
  - Back pain [Unknown]
  - Bone density decreased [Unknown]
  - Bursitis [Unknown]
  - C-reactive protein increased [Unknown]
  - Conjunctivitis [Unknown]
  - Contraindicated product administered [Unknown]
  - Crepitations [Unknown]
  - Cushingoid [Unknown]
  - Deformity [Unknown]
  - Diarrhoea [Unknown]
  - Dizziness [Unknown]
  - Drug ineffective [Unknown]
  - Drug intolerance [Unknown]
  - Dry eye [Unknown]
  - Dry mouth [Unknown]
  - Dyspnoea [Unknown]
  - Erythema [Unknown]
  - Eye irritation [Unknown]
  - Eye pain [Unknown]
  - Fatigue [Unknown]
  - Feeling abnormal [Unknown]
  - Feeling jittery [Unknown]
  - Fibromyalgia [Unknown]
  - Flank pain [Unknown]
  - Haemoglobin decreased [Unknown]
  - Hand deformity [Unknown]
  - Impaired work ability [Unknown]
  - Infection [Unknown]
  - Inflammation [Unknown]
  - Interstitial lung disease [Unknown]
  - Joint effusion [Unknown]
  - Joint range of motion decreased [Unknown]
  - Joint swelling [Unknown]
  - Liver disorder [Unknown]
  - Lung disorder [Unknown]
  - Malaise [Unknown]
  - Muscular weakness [Unknown]
  - Musculoskeletal pain [Unknown]
  - Musculoskeletal stiffness [Unknown]
  - Myalgia [Unknown]
  - Nausea [Unknown]
  - Neoplasm malignant [Unknown]
  - Nodule [Unknown]
  - Ocular hyperaemia [Unknown]
  - Off label use [Unknown]
  - Pain [Unknown]
  - Pain in extremity [Unknown]
  - Peripheral swelling [Unknown]
  - Photophobia [Unknown]
  - Pleuritic pain [Unknown]
  - Pneumonia [Unknown]
  - Pruritus [Unknown]
  - Pulmonary toxicity [Unknown]
  - Rash [Unknown]
  - Rash maculo-papular [Unknown]
  - Rash pruritic [Unknown]
  - Red blood cell count decreased [Unknown]
  - Rheumatoid arthritis [Unknown]
  - Rheumatoid nodule [Unknown]
  - Scleritis [Unknown]
  - Skin ulcer [Unknown]
  - Swelling face [Unknown]
  - Synovial cyst [Unknown]
  - Synovial fluid analysis [Unknown]
  - Tenderness [Unknown]
  - Tenosynovitis [Unknown]
  - Tenosynovitis stenosans [Unknown]
  - Therapeutic product effect decreased [Unknown]
  - Thrombosis [Unknown]
  - Treatment failure [Unknown]
  - Ulcer [Unknown]
  - Upper respiratory tract infection [Unknown]
  - Visual impairment [Unknown]
  - Wheezing [Unknown]
  - White blood cell count decreased [Unknown]
  - Synovial disorder [Unknown]
  - Arthropathy [Fatal]
  - Condition aggravated [Fatal]
  - Drug hypersensitivity [Fatal]
  - Duodenal ulcer perforation [Fatal]
  - Facet joint syndrome [Fatal]
  - Folliculitis [Fatal]
  - Gastrointestinal toxicity [Fatal]
  - General physical health deterioration [Fatal]
  - Glossodynia [Fatal]
  - Helicobacter infection [Fatal]
  - Hepatotoxicity [Fatal]
  - Hypoaesthesia [Fatal]
  - Impaired healing [Fatal]
  - Infusion related reaction [Fatal]
  - Joint injury [Fatal]
  - Joint stiffness [Fatal]
  - Pyrexia [Fatal]
  - Quality of life decreased [Fatal]
  - Road traffic accident [Fatal]
  - Sciatica [Fatal]
  - Swelling [Fatal]
  - Systemic lupus erythematosus [Fatal]
  - Therapeutic product effect incomplete [Fatal]
  - Therapy non-responder [Fatal]
  - Type 2 diabetes mellitus [Fatal]
  - Hepatic enzyme decreased [Fatal]
  - Weight decreased [Fatal]
  - Hypertension [Fatal]
  - Red blood cell sedimentation rate decreased [Fatal]
